FAERS Safety Report 7891100-2 (Version None)
Quarter: 2011Q4

REPORT INFORMATION
  Report Type: 
  Country: None (occurrence: None)
  Receive Date: 20111103
  Receipt Date: 20110729
  Transmission Date: 20120403
  Serious: No
  Sender: FDA-Public Use
  Company Number: US-AMGEN-USASP2011038628

PATIENT
  Age: 51 Year
  Sex: Female
  Weight: 240 kg

DRUGS (11)
  1. LISINOPRIL AND HYDROCHLOROTHIAZIDE [Concomitant]
     Dosage: 10 MG, UNK
  2. ENBREL [Suspect]
     Indication: PRODUCT USED FOR UNKNOWN INDICATION
     Dosage: 25 MG, 2 TIMES/WK
  3. PRILOSEC [Concomitant]
     Dosage: 10 MG, UNK
  4. PAXIL [Concomitant]
     Dosage: 20 MG, UNK
  5. ASPIRIN [Concomitant]
     Dosage: 81 MG, UNK
  6. XANAX [Concomitant]
     Dosage: 2 MG, UNK
  7. MINOCYCLINE HCL [Concomitant]
     Dosage: 50 MG, UNK
  8. PAROXETINE HCL [Concomitant]
     Dosage: 20 MG, UNK
  9. ARAVA [Concomitant]
     Dosage: 10 MG, UNK
  10. THYROID TAB [Concomitant]
     Dosage: 130 MG, UNK
  11. VITAMIN D [Concomitant]
     Dosage: 1000 IU, UNK

REACTIONS (2)
  - FOLLICULITIS [None]
  - SKIN DISORDER [None]
